FAERS Safety Report 7311464-8 (Version None)
Quarter: 2011Q1

REPORT INFORMATION
  Report Type: 
  Country: None (occurrence: None)
  Receive Date: 20110216
  Receipt Date: 20110216
  Transmission Date: 20110831
  Serious: Yes (Hospitalization)
  Sender: FDA-Public Use
  Company Number: None

PATIENT
  Age: 54 Year
  Sex: Male
  Weight: 79.9 kg

DRUGS (6)
  1. CARBOPLATIN [Suspect]
     Indication: METASTATIC MALIGNANT MELANOMA
     Dosage: 830 MG ONCE X 28 DAYS IV DRIP
     Route: 041
     Dates: start: 20101124, end: 20110119
  2. LORTAB [Concomitant]
  3. ACETAMINOPHEN [Concomitant]
  4. LORTAB [Concomitant]
  5. GAMMA KNIFE TREATMENT [Concomitant]
  6. PACLITAXEL [Suspect]
     Indication: METASTATIC MALIGNANT MELANOMA
     Dosage: 320MG ONCE X 28 DAYS IV DRIP
     Route: 041
     Dates: start: 20101124, end: 20110119

REACTIONS (3)
  - DYSPHAGIA [None]
  - LOCAL SWELLING [None]
  - CELLULITIS [None]
